FAERS Safety Report 6185318-7 (Version None)
Quarter: 2009Q2

REPORT INFORMATION
  Report Type: 
  Country: None (occurrence: None)
  Receive Date: 20090511
  Receipt Date: 20090505
  Transmission Date: 20091009
  Serious: Yes (Death)
  Sender: FDA-Public Use
  Company Number: DE-ROCHE-631452

PATIENT
  Age: 61 Year
  Sex: Male
  Weight: 115 kg

DRUGS (3)
  1. XELODA [Suspect]
     Route: 048
     Dates: start: 20090216, end: 20090220
  2. BEVACIZUMAB [Concomitant]
     Dosage: DOSE: I/90 MINUTES, 862 DAILY
     Route: 048
     Dates: start: 20090216
  3. OXALIPLATIN [Concomitant]
     Dosage: DOSE: I/1 HOUR, 260 DAILY
     Route: 048
     Dates: start: 20090216

REACTIONS (3)
  - GASTROENTERITIS NOROVIRUS [None]
  - MUCOSAL INFLAMMATION [None]
  - PANCYTOPENIA [None]
